FAERS Safety Report 19383504 (Version 1)
Quarter: 2021Q2

REPORT INFORMATION
  Report Type: Spontaneous
  Country: US (occurrence: US)
  Receive Date: 20210608
  Receipt Date: 20210608
  Transmission Date: 20210717
  Serious: Yes (Other)
  Sender: FDA-Public Use
  Company Number: US-USWM, LLC-UWM202105-000050

PATIENT
  Age: 1 Day
  Sex: Female

DRUGS (1)
  1. NADOLOL. [Suspect]
     Active Substance: NADOLOL
     Indication: PRODUCT USED FOR UNKNOWN INDICATION
     Route: 064

REACTIONS (4)
  - Foetal exposure during pregnancy [Unknown]
  - Foetal growth restriction [Unknown]
  - Hypoglycaemia neonatal [Recovered/Resolved]
  - Cardiopulmonary failure [Unknown]
